FAERS Safety Report 13252516 (Version 1)
Quarter: 2017Q1

REPORT INFORMATION
  Report Type: Spontaneous
  Country: US (occurrence: US)
  Receive Date: 20170220
  Receipt Date: 20170220
  Transmission Date: 20170428
  Serious: No
  Sender: FDA-Public Use
  Company Number: US-COLLEGIUM PHARMACEUTICAL, INC.-2016CGM00043

PATIENT
  Age: 44 Year
  Sex: Female
  Weight: 75.74 kg

DRUGS (4)
  1. XTAMPZA ER [Suspect]
     Active Substance: OXYCODONE
     Indication: ARTHRALGIA
     Dosage: 1 CAPSULES, EVERY 12 HOURS
     Route: 048
     Dates: start: 2016, end: 201611
  2. XTAMPZA ER [Suspect]
     Active Substance: OXYCODONE
     Indication: RHEUMATOID ARTHRITIS
  3. UNSPECIFIED MEDICATIONS [Concomitant]
     Active Substance: UNSPECIFIED INGREDIENT
  4. DULOXETINE. [Concomitant]
     Active Substance: DULOXETINE
     Dosage: 1 CAPSULES, 2X/DAY
     Route: 048

REACTIONS (1)
  - Rash macular [Recovered/Resolved]

NARRATIVE: CASE EVENT DATE: 20161102
